FAERS Safety Report 14393917 (Version 2)
Quarter: 2018Q1

REPORT INFORMATION
  Report Type: Report from Study
  Country: GB (occurrence: GB)
  Receive Date: 20180116
  Receipt Date: 20180122
  Transmission Date: 20180509
  Serious: Yes (Hospitalization)
  Sender: FDA-Public Use
  Company Number: GB-CELLTRION INC.-2018GB017231

PATIENT

DRUGS (2)
  1. METHOTREXATE. [Concomitant]
     Active Substance: METHOTREXATE
     Indication: RHEUMATOID ARTHRITIS
  2. REMSIMA [Suspect]
     Active Substance: INFLIXIMAB
     Indication: RHEUMATOID ARTHRITIS
     Dosage: 200 MG
     Route: 042
     Dates: start: 20160913, end: 20160913

REACTIONS (6)
  - Fall [Unknown]
  - Hypotension [Unknown]
  - Hypercalcaemia [Unknown]
  - Hyponatraemia [Unknown]
  - Tachycardia [Unknown]
  - Constipation [Unknown]

NARRATIVE: CASE EVENT DATE: 20170809
